FAERS Safety Report 24417271 (Version 1)
Quarter: 2024Q4

REPORT INFORMATION
  Report Type: Spontaneous
  Country: DE (occurrence: DE)
  Receive Date: 20241009
  Receipt Date: 20241009
  Transmission Date: 20250115
  Serious: Yes (Other)
  Sender: AKEBIA THERAPEUTICS
  Company Number: DE-Medice Arzneimittel-VafseoSPO31095

PATIENT
  Age: 85 Year
  Sex: Female
  Weight: 100 kg

DRUGS (1)
  1. VADADUSTAT [Suspect]
     Active Substance: VADADUSTAT
     Indication: Chronic kidney disease
     Dosage: 300 MILLIGRAM, QD
     Route: 048
     Dates: start: 20240718, end: 20240730

REACTIONS (2)
  - Visual impairment [Recovered/Resolved]
  - Vision blurred [Recovered/Resolved]

NARRATIVE: CASE EVENT DATE: 20240725
